FAERS Safety Report 5182053-9 (Version None)
Quarter: 2006Q4

REPORT INFORMATION
  Report Type: 
  Country: None (occurrence: None)
  Receive Date: 20061220
  Receipt Date: 20060502
  Transmission Date: 20070319
  Serious: No
  Sender: FDA-Public Use
  Company Number: US-GLAXOSMITHKLINE-A0603992A

PATIENT
  Age: 68 Year
  Sex: Female

DRUGS (2)
  1. COMMIT [Suspect]
     Dates: start: 20060210
  2. NICODERM CQ [Suspect]
     Dates: start: 20060201

REACTIONS (5)
  - APPLICATION SITE ERYTHEMA [None]
  - APPLICATION SITE SWELLING [None]
  - DERMATITIS CONTACT [None]
  - FLATULENCE [None]
  - PHARYNGOLARYNGEAL PAIN [None]
